FAERS Safety Report 8244905-2 (Version None)
Quarter: 2012Q1

REPORT INFORMATION
  Report Type: 
  Country: None (occurrence: None)
  Receive Date: 20120329
  Receipt Date: 20110906
  Transmission Date: 20120608
  Serious: Yes (Other)
  Sender: FDA-Public Use
  Company Number: US-MYLANLABS-2011S1018154

PATIENT
  Age: 48 Year
  Sex: Female

DRUGS (7)
  1. ZANAFLEX [Concomitant]
  2. FENTANYL-100 [Suspect]
     Indication: BACK PAIN
     Dosage: Q 48 HOURS
     Route: 062
     Dates: start: 20080101
  3. GABAPENTIN [Concomitant]
  4. LIDODERM [Concomitant]
  5. TRAMADOL [Concomitant]
  6. DILAUDID [Concomitant]
  7. DICLOFENAC SODIUM [Concomitant]

REACTIONS (3)
  - DRUG WITHDRAWAL SYNDROME [None]
  - DRUG EFFECT DECREASED [None]
  - DEPENDENCE [None]
